FAERS Safety Report 8796206 (Version 2)
Quarter: 2012Q4

REPORT INFORMATION
  Report Type: 
  Country: US (occurrence: US)
  Receive Date: 20120919
  Receipt Date: 20121009
  Transmission Date: 20130627
  Serious: No
  Sender: FDA-Public Use
  Company Number: US-BAYER-2012-096498

PATIENT
  Age: 39 Year
  Sex: Female
  Weight: 75 kg

DRUGS (4)
  1. BETASERON [Suspect]
     Indication: MULTIPLE SCLEROSIS
     Dosage: 0.3 mg, QOD
  2. ALEVE CAPLET/TABLET,MIDOL EXTENDED RELIEF CAPLET [Concomitant]
     Dosage: 220 mg
  3. VITAMIN D [Concomitant]
     Dosage: 1000 unit
  4. COD LIVER OIL [Concomitant]

REACTIONS (3)
  - Injection site reaction [Recovering/Resolving]
  - Injection site haematoma [Recovering/Resolving]
  - Injection site erythema [Recovering/Resolving]
